FAERS Safety Report 10084461 (Version 1)
Quarter: 2014Q2

REPORT INFORMATION
  Report Type: Spontaneous
  Country: US (occurrence: None)
  Receive Date: 20140404
  Receipt Date: 20140404
  Transmission Date: 20141212
  Serious: No
  Sender: FDA-Public Use
  Company Number: 1317849

PATIENT
  Sex: Female

DRUGS (1)
  1. PERJETA (PERTUZUMAB) (INFUSION, SOLUTION) [Suspect]
     Indication: BREAST CANCER

REACTIONS (4)
  - Paraesthesia oral [None]
  - Paraesthesia [None]
  - Rash [None]
  - Urticaria [None]
